FAERS Safety Report 17303441 (Version 1)
Quarter: 2020Q1

REPORT INFORMATION
  Report Type: Spontaneous
  Country: FR (occurrence: FR)
  Receive Date: 20200122
  Receipt Date: 20200122
  Transmission Date: 20200409
  Serious: Yes (Other)
  Sender: FDA-Public Use
  Company Number: FR-ANIPHARMA-2020-FR-000026

PATIENT
  Age: 72 Year
  Sex: Male

DRUGS (3)
  1. CANDESARTAN CILEXETIL. [Suspect]
     Active Substance: CANDESARTAN CILEXETIL
     Indication: HYPERTENSION
     Dosage: 8 MG QD
     Route: 048
  2. NEXAVAR [Suspect]
     Active Substance: SORAFENIB
     Dosage: 800 MG QD
     Route: 048
     Dates: start: 20190607, end: 20190910
  3. SIMVASTATIN. [Suspect]
     Active Substance: SIMVASTATIN
     Dosage: 40 MG QD
     Route: 048

REACTIONS (2)
  - Asthenia [Unknown]
  - Hepatocellular injury [Unknown]

NARRATIVE: CASE EVENT DATE: 20190827
